FAERS Safety Report 13272017 (Version 2)
Quarter: 2017Q1

REPORT INFORMATION
  Report Type: Spontaneous
  Country: ES (occurrence: ES)
  Receive Date: 20170227
  Receipt Date: 20170306
  Transmission Date: 20170428
  Serious: Yes (Life-Threatening)
  Sender: FDA-Public Use
  Company Number: ES-ROCHE-1899112

PATIENT
  Age: 67 Year
  Sex: Male

DRUGS (3)
  1. ACTILYSE [Suspect]
     Active Substance: ALTEPLASE
     Indication: LATERAL MEDULLARY SYNDROME
     Route: 042
     Dates: start: 20161218, end: 20161218
  2. ACTILYSE [Suspect]
     Active Substance: ALTEPLASE
     Indication: FIBRINOLYSIS
  3. CEFUROXIME. [Concomitant]
     Active Substance: CEFUROXIME
     Route: 065
     Dates: start: 20161218, end: 20161218

REACTIONS (1)
  - Cardio-respiratory arrest [Recovered/Resolved]

NARRATIVE: CASE EVENT DATE: 20161219
